FAERS Safety Report 8509209 (Version 2)
Quarter: 2013Q2

REPORT INFORMATION
  Report Type: Report from Study
  Country: US (occurrence: US)
  Receive Date: 20120412
  Receipt Date: 20130503
  Transmission Date: 20140414
  Serious: Yes (Hospitalization, Other)
  Sender: FDA-Public Use
  Company Number: US-ABBOTT-12P-163-0921683-00

PATIENT
  Age: 75 Year
  Sex: Female
  Weight: 77.18 kg

DRUGS (9)
  1. HUMIRA 40 MG/ 0.8 ML PRE-FILLED SYRINGE [Suspect]
     Indication: RHEUMATOID ARTHRITIS
     Dates: start: 2008, end: 201112
  2. LIPITOR [Concomitant]
     Indication: HYPERLIPIDAEMIA
     Route: 048
  3. THYROID MEDICATION [Concomitant]
     Indication: HYPOTHYROIDISM
     Route: 048
  4. CELEBREX [Concomitant]
     Indication: PRODUCT USED FOR UNKNOWN INDICATION
  5. SYNTHROID [Concomitant]
     Indication: HYPOTHYROIDISM
  6. PREDNISONE [Concomitant]
     Indication: PAIN
  7. ACIPHEX [Concomitant]
     Indication: ULCER
  8. CLARINEX [Concomitant]
     Indication: HYPERSENSITIVITY
  9. HYDROCODONE [Concomitant]
     Indication: ARTHRALGIA

REACTIONS (7)
  - Pollakiuria [Recovered/Resolved]
  - Back pain [Recovered/Resolved]
  - Pain [Recovered/Resolved]
  - Kidney infection [Recovered/Resolved]
  - Breast mass [Recovered/Resolved]
  - Nasopharyngitis [Recovered/Resolved]
  - Sinusitis [Recovered/Resolved]
